FAERS Safety Report 9692774 (Version 1)
Quarter: 2013Q4

REPORT INFORMATION
  Report Type: Spontaneous
  Country: US (occurrence: None)
  Receive Date: 20131115
  Receipt Date: 20131115
  Transmission Date: 20140711
  Serious: No
  Sender: FDA-Public Use
  Company Number: None

PATIENT
  Age: 27 Year
  Sex: Female
  Weight: 84.5 kg

DRUGS (1)
  1. ZOSYN [Suspect]
     Indication: PELVIC INFLAMMATORY DISEASE
     Dosage: 50ML BAG (RATE OF 12.5ML/HR)
     Route: 042
     Dates: start: 20131114, end: 20131114

REACTIONS (5)
  - Anaphylactic shock [None]
  - Swelling face [None]
  - Pallor [None]
  - Rash macular [None]
  - Dizziness [None]
